FAERS Safety Report 9391888 (Version 1)
Quarter: 2013Q3

REPORT INFORMATION
  Report Type: Spontaneous
  Country: US (occurrence: None)
  Receive Date: 20130705
  Receipt Date: 20130705
  Transmission Date: 20140515
  Serious: Yes (Hospitalization)
  Sender: FDA-Public Use
  Company Number: TPA2013A06249

PATIENT
  Age: 70 Year
  Sex: Male

DRUGS (1)
  1. EDARBYCLOR [Suspect]
     Indication: HYPERTENSION

REACTIONS (3)
  - Blood potassium increased [None]
  - Blood creatinine increased [None]
  - Dehydration [None]
